FAERS Safety Report 9465340 (Version 3)
Quarter: 2013Q4

REPORT INFORMATION
  Report Type: Spontaneous
  Country: US (occurrence: US)
  Receive Date: 20130820
  Receipt Date: 20131107
  Transmission Date: 20140711
  Serious: No
  Sender: FDA-Public Use
  Company Number: US-009507513-1308USA006963

PATIENT
  Sex: Female
  Weight: 101.59 kg

DRUGS (1)
  1. IMPLANON [Suspect]
     Indication: CONTRACEPTION
     Dosage: 1 ROD
     Route: 059
     Dates: start: 20120224, end: 20130815

REACTIONS (3)
  - Weight increased [Recovered/Resolved]
  - Medical device complication [Not Recovered/Not Resolved]
  - Device dislocation [Recovered/Resolved]
